FAERS Safety Report 15947085 (Version 1)
Quarter: 2019Q1

REPORT INFORMATION
  Report Type: Spontaneous
  Country: US (occurrence: US)
  Receive Date: 20190212
  Receipt Date: 20190212
  Transmission Date: 20190417
  Serious: Yes (Other)
  Sender: FDA-Public Use
  Company Number: US-GLAXOSMITHKLINE-US2019018227

PATIENT
  Sex: Female

DRUGS (1)
  1. TRELEGY ELLIPTA [Suspect]
     Active Substance: FLUTICASONE FUROATE\UMECLIDINIUM BROMIDE\VILANTEROL TRIFENATATE
     Indication: PRODUCT USED FOR UNKNOWN INDICATION
     Dosage: 1 PUFF(S), 1D
     Route: 055
     Dates: start: 20190123

REACTIONS (12)
  - Increased viscosity of bronchial secretion [Unknown]
  - Vomiting [Unknown]
  - Cough [Unknown]
  - Dyspnoea [Unknown]
  - Feeling cold [Unknown]
  - Body temperature increased [Unknown]
  - Choking [Unknown]
  - Fatigue [Recovering/Resolving]
  - Productive cough [Unknown]
  - Chills [Unknown]
  - Tremor [Unknown]
  - Nausea [Unknown]

NARRATIVE: CASE EVENT DATE: 201901
